FAERS Safety Report 16154372 (Version 1)
Quarter: 2019Q2

REPORT INFORMATION
  Report Type: Spontaneous
  Country: NO (occurrence: NO)
  Receive Date: 20190403
  Receipt Date: 20190403
  Transmission Date: 20190711
  Serious: Yes (Death)
  Sender: FDA-Public Use
  Company Number: NO-ELI_LILLY_AND_COMPANY-NO201904000617

PATIENT
  Age: 77 Year
  Sex: Female

DRUGS (5)
  1. KLEXANE [Concomitant]
     Active Substance: ENOXAPARIN
     Dosage: 1 DOSAGE FORM, BID
     Route: 058
  2. ZYPADHERA [Suspect]
     Active Substance: OLANZAPINE PAMOATE
     Indication: BIPOLAR DISORDER
     Dosage: 210 MG, MONTHLY (1/M)
     Route: 030
     Dates: start: 20181023, end: 20181122
  3. HYPROMELLOSE [Concomitant]
     Active Substance: HYPROMELLOSES
     Dosage: 1 DOSAGE FORM, BID
     Route: 047
  4. MOMETASONE SANDOZ [Concomitant]
     Active Substance: MOMETASONE
     Dosage: 2 DOSAGE FORM, BID
     Route: 045
  5. TRIOBE [CYANOCOBALAMIN;FOLIC ACID;PYRIDOXINE [Concomitant]
     Dosage: 1 DOSAGE FORM, DAILY
     Route: 048

REACTIONS (1)
  - Neuroleptic malignant syndrome [Fatal]

NARRATIVE: CASE EVENT DATE: 20181208
